FAERS Safety Report 14685238 (Version 1)
Quarter: 2018Q1

REPORT INFORMATION
  Report Type: Spontaneous
  Country: US (occurrence: US)
  Receive Date: 20180327
  Receipt Date: 20180327
  Transmission Date: 20180509
  Serious: No
  Sender: FDA-Public Use
  Company Number: US-BAYER-2018-059099

PATIENT
  Age: 64 Year
  Sex: Female

DRUGS (1)
  1. CLARITIN-D 24 HOUR [Suspect]
     Active Substance: LORATADINE\PSEUDOEPHEDRINE SULFATE
     Indication: ALLERGIC RESPIRATORY DISEASE
     Dosage: 1 DF, QD
     Route: 048
     Dates: start: 20180321, end: 201803

REACTIONS (3)
  - Product prescribing issue [None]
  - Inappropriate schedule of drug administration [Recovered/Resolved]
  - Drug administration error [None]

NARRATIVE: CASE EVENT DATE: 20180324
